FAERS Safety Report 5177574-9 (Version None)
Quarter: 2006Q4

REPORT INFORMATION
  Report Type: 
  Country: None (occurrence: None)
  Receive Date: 20061207
  Receipt Date: 20061128
  Transmission Date: 20070319
  Serious: Yes (Hospitalization, Disabling)
  Sender: FDA-Public Use
  Company Number: 2005155409

PATIENT
  Age: 51 Year
  Sex: Female

DRUGS (2)
  1. LIPITOR [Suspect]
     Indication: BLOOD CHOLESTEROL INCREASED
     Dates: start: 20030101, end: 20030101
  2. CELEBREX [Suspect]
     Indication: PAIN

REACTIONS (8)
  - ARTHRALGIA [None]
  - ARTHROPATHY [None]
  - ASTHENIA [None]
  - CARDIAC DISORDER [None]
  - DYSSTASIA [None]
  - PAIN [None]
  - PAIN IN EXTREMITY [None]
  - STRESS [None]
